FAERS Safety Report 5191185-0 (Version None)
Quarter: 2006Q4

REPORT INFORMATION
  Report Type: 
  Country: None (occurrence: None)
  Receive Date: 20061218
  Receipt Date: 20061204
  Transmission Date: 20070319
  Serious: Yes (Hospitalization, Other)
  Sender: FDA-Public Use
  Company Number: 2006144070

PATIENT
  Age: 8 Year
  Sex: Female
  Weight: 18.4 kg

DRUGS (2)
  1. GENOTROPIN [Suspect]
     Indication: GROWTH HORMONE DEFICIENCY
     Dosage: 0.6 MG (DAILY, 6 DAYS/WEEK)
     Dates: start: 20050101
  2. JOSAMYCIN (JOSAMYCIN) [Concomitant]

REACTIONS (9)
  - ANOREXIA [None]
  - CREATINE PHOSPHOKINASE DECREASED [None]
  - DEHYDRATION [None]
  - HENOCH-SCHONLEIN PURPURA [None]
  - LYMPHADENITIS [None]
  - PHARYNGITIS STREPTOCOCCAL [None]
  - PHARYNGOLARYNGEAL PAIN [None]
  - PROTEINURIA [None]
  - RECTAL HAEMORRHAGE [None]
